FAERS Safety Report 5929761-7 (Version None)
Quarter: 2008Q4

REPORT INFORMATION
  Report Type: 
  Country: None (occurrence: None)
  Receive Date: 20081024
  Receipt Date: 20081016
  Transmission Date: 20090506
  Serious: Yes (Death, Hospitalization)
  Sender: FDA-Public Use
  Company Number: US-ABBOTT-08P-163-0471612-00

PATIENT
  Sex: Male
  Weight: 72.186 kg

DRUGS (4)
  1. RITONAVIR SOFT GELATIN CAPSULES [Suspect]
     Indication: HIV INFECTION
     Route: 048
     Dates: start: 20070928, end: 20080731
  2. DARUNAVIR [Concomitant]
     Indication: HIV INFECTION
     Route: 048
     Dates: start: 20070928, end: 20080731
  3. TMC-114 [Concomitant]
     Indication: HIV INFECTION
     Route: 048
     Dates: start: 20070928, end: 20080815
  4. LOMOTIL [Concomitant]
     Indication: DIARRHOEA
     Route: 048
     Dates: start: 20080731, end: 20080815

REACTIONS (1)
  - PNEUMONIA [None]
